FAERS Safety Report 18256662 (Version 1)
Quarter: 2020Q3

REPORT INFORMATION
  Report Type: Spontaneous
  Country: US (occurrence: US)
  Receive Date: 20200911
  Receipt Date: 20200911
  Transmission Date: 20201103
  Serious: Yes (Other)
  Sender: FDA-Public Use
  Company Number: US-EMCURE PHARMACEUTICALS LTD-2020-EPL-001274

PATIENT
  Age: 3 Year
  Sex: Female

DRUGS (2)
  1. IRINOTECAN HYDROCHLORIDE. [Suspect]
     Active Substance: IRINOTECAN HYDROCHLORIDE
     Indication: MEDULLOBLASTOMA RECURRENT
     Route: 065
  2. TEMOZOLOMIDE. [Suspect]
     Active Substance: TEMOZOLOMIDE
     Indication: MEDULLOBLASTOMA RECURRENT
     Dosage: UNK
     Route: 065

REACTIONS (3)
  - Ganglioneuroma [Recovered/Resolved]
  - Disease progression [Recovered/Resolved]
  - Off label use [Unknown]
